FAERS Safety Report 11364345 (Version 1)
Quarter: 2015Q3

REPORT INFORMATION
  Report Type: Spontaneous
  Country: US (occurrence: None)
  Receive Date: 20150810
  Receipt Date: 20150810
  Transmission Date: 20151125
  Serious: Yes (Hospitalization)
  Sender: FDA-Public Use
  Company Number: None

PATIENT
  Age: 73 Year
  Sex: Male
  Weight: 115.9 kg

DRUGS (16)
  1. FOSINOPRIL SODIUM. [Concomitant]
     Active Substance: FOSINOPRIL SODIUM
  2. FUROSEMIDE. [Concomitant]
     Active Substance: FUROSEMIDE
  3. LUCENTIS [Suspect]
     Active Substance: RANIBIZUMAB
     Indication: DIABETIC RETINAL OEDEMA
     Dosage: 0.5 ML MONTHLY INTRAVITREAL
     Dates: start: 20140120
  4. SULINDAC. [Concomitant]
     Active Substance: SULINDAC
  5. TRAMADOL. [Concomitant]
     Active Substance: TRAMADOL
  6. LOVASTATIN. [Concomitant]
     Active Substance: LOVASTATIN
  7. VICTOZA [Concomitant]
     Active Substance: LIRAGLUTIDE
  8. AMLODIPINE BESYLATE. [Concomitant]
     Active Substance: AMLODIPINE BESYLATE
  9. GLIMEPERIDE [Concomitant]
     Active Substance: GLIMEPIRIDE
  10. CLOPIDEGROL BISULFATE [Concomitant]
  11. GLUCOPHAGE [Concomitant]
     Active Substance: METFORMIN HYDROCHLORIDE
  12. LANTUS [Concomitant]
     Active Substance: INSULIN GLARGINE
  13. XARELTO [Concomitant]
     Active Substance: RIVAROXABAN
  14. ATORVASTATIN CALCIUM. [Concomitant]
     Active Substance: ATORVASTATIN CALCIUM
  15. CARVEDILOL. [Concomitant]
     Active Substance: CARVEDILOL
  16. FENOFIBRATE. [Concomitant]
     Active Substance: FENOFIBRATE

REACTIONS (1)
  - Cardiac failure congestive [None]

NARRATIVE: CASE EVENT DATE: 20150622
